FAERS Safety Report 20923634 (Version 1)
Quarter: 2022Q2

REPORT INFORMATION
  Report Type: Spontaneous
  Country: US (occurrence: US)
  Receive Date: 20220607
  Receipt Date: 20220607
  Transmission Date: 20220721
  Serious: No
  Sender: FDA-Public Use
  Company Number: US-ORGANON-O2206USA000338

PATIENT
  Sex: Female

DRUGS (1)
  1. DIPROLENE [Suspect]
     Active Substance: BETAMETHASONE DIPROPIONATE
     Indication: Alopecia totalis
     Dosage: ONCE DAILY APPLICATION OF AUGMENTED BETAMETHASONE DIPROPIONATE 0.05% OINTMENT UNDER OCCLUSION TO BE
     Dates: start: 202004

REACTIONS (1)
  - Product use in unapproved indication [Unknown]
